FAERS Safety Report 13530737 (Version 1)
Quarter: 2017Q2

REPORT INFORMATION
  Report Type: Spontaneous
  Country: US (occurrence: US)
  Receive Date: 20170509
  Receipt Date: 20170509
  Transmission Date: 20170830
  Serious: Yes (Death, Hospitalization, Disabling)
  Sender: FDA-Public Use
  Company Number: None

PATIENT
  Age: 30 Year
  Sex: Male
  Weight: 105.7 kg

DRUGS (5)
  1. LITHIUM. [Concomitant]
     Active Substance: LITHIUM
  2. FISH OIL [Concomitant]
     Active Substance: FISH OIL
  3. VITAMIN D [Concomitant]
     Active Substance: CHOLECALCIFEROL
  4. CLONAZEPAM. [Concomitant]
     Active Substance: CLONAZEPAM
  5. ZYPREXA ZYDIS [Suspect]
     Active Substance: OLANZAPINE
     Indication: BIPOLAR DISORDER
     Dosage: ?          QUANTITY:2 TABLET(S);?AT BEDTIME ORAL
     Route: 048

REACTIONS (3)
  - Analgesic drug level above therapeutic [None]
  - Weight increased [None]
  - Hypotension [None]
